FAERS Safety Report 18749652 (Version 2)
Quarter: 2021Q1

REPORT INFORMATION
  Report Type: Spontaneous
  Country: US (occurrence: US)
  Receive Date: 20210117
  Receipt Date: 20210205
  Transmission Date: 20210419
  Serious: Yes (Hospitalization, Other)
  Sender: FDA-Public Use
  Company Number: US-ASTRAZENECA-2021A004931

PATIENT
  Age: 59 Year
  Sex: Male
  Weight: 91.6 kg

DRUGS (11)
  1. ALBUTEROL. [Concomitant]
     Active Substance: ALBUTEROL
     Dosage: 1 PUFF BY MOUTH EVERY 6 HOURS
  2. ALPRAZOLAM. [Concomitant]
     Active Substance: ALPRAZOLAM
     Indication: ANXIETY
     Dosage: TAKE 0.25 MG,NIGHTLY
     Route: 048
  3. BUDESONIDE FORMOTEROL [Concomitant]
     Active Substance: BUDESONIDE
     Dosage: INHALE 2 PUFFS,DAILY
  4. METOPROLOL TARTRATE. [Suspect]
     Active Substance: METOPROLOL TARTRATE
     Dosage: TAKE 0.5 TABLET BY MOUTH TWO TIMES A DAY
     Route: 048
  5. SYMBICORT [Suspect]
     Active Substance: BUDESONIDE\FORMOTEROL FUMARATE DIHYDRATE
     Indication: ASTHMA
     Dosage: 4 UG/INHAL DAILY
     Route: 055
     Dates: start: 2017, end: 20191108
  6. ASPIRIN. [Concomitant]
     Active Substance: ASPIRIN
     Dosage: TAKE ONE TABLET 81MG BY MOUTH DAILY.
     Route: 048
  7. PAROXETINE. [Concomitant]
     Active Substance: PAROXETINE
     Route: 048
  8. PAXIL [Concomitant]
     Active Substance: PAROXETINE HYDROCHLORIDE
     Indication: ANXIETY
     Dosage: 30.0MG UNKNOWN
  9. SAW PALMETTO [Concomitant]
     Active Substance: HERBALS\SAW PALMETTO
     Dosage: TAKE ONE CAPSULE/TABLE, DAILY
     Route: 048
  10. ATORVASTATIN [Concomitant]
     Active Substance: ATORVASTATIN
     Indication: BLOOD CHOLESTEROL INCREASED
     Dosage: 20.0MG UNKNOWN
  11. ATORVASTATIN [Concomitant]
     Active Substance: ATORVASTATIN
     Indication: BLOOD CHOLESTEROL INCREASED
     Dosage: 40.0MG UNKNOWN

REACTIONS (7)
  - Cardiac stress test abnormal [Unknown]
  - Syncope [Unknown]
  - Coronary artery disease [Unknown]
  - Tachycardia paroxysmal [Recovered/Resolved]
  - Hyperlipidaemia [Unknown]
  - Empty sella syndrome [Unknown]
  - Anxiety [Unknown]

NARRATIVE: CASE EVENT DATE: 201912
